FAERS Safety Report 25286362 (Version 1)
Quarter: 2025Q2

REPORT INFORMATION
  Report Type: Spontaneous
  Country: CN (occurrence: CN)
  Receive Date: 20250509
  Receipt Date: 20250509
  Transmission Date: 20250716
  Serious: Yes (Other)
  Sender: RECORDATI
  Company Number: CN-ORPHANEU-2025003160

PATIENT
  Age: 58 Year
  Sex: Male

DRUGS (6)
  1. SILTUXIMAB [Suspect]
     Active Substance: SILTUXIMAB
     Indication: Castleman^s disease
  2. SILTUXIMAB [Suspect]
     Active Substance: SILTUXIMAB
  3. BORTEZOMIB [Suspect]
     Active Substance: BORTEZOMIB
     Indication: Castleman^s disease
  4. BORTEZOMIB [Suspect]
     Active Substance: BORTEZOMIB
  5. CYCLOPHOSPHAMIDE [Suspect]
     Active Substance: CYCLOPHOSPHAMIDE
     Indication: Castleman^s disease
  6. DEXAMETHASONE [Suspect]
     Active Substance: DEXAMETHASONE
     Indication: Castleman^s disease

REACTIONS (1)
  - Myelosuppression [Recovered/Resolved]
